FAERS Safety Report 5230356-1 (Version None)
Quarter: 2007Q1

REPORT INFORMATION
  Report Type: 
  Country: None (occurrence: None)
  Receive Date: 20070206
  Receipt Date: 20070126
  Transmission Date: 20070707
  Serious: Yes (Other)
  Sender: FDA-Public Use
  Company Number: NO-JNJFOC-20070107070

PATIENT
  Age: 4 Decade
  Sex: Male

DRUGS (8)
  1. REMICADE [Suspect]
     Route: 042
  2. REMICADE [Suspect]
     Route: 042
  3. REMICADE [Suspect]
     Route: 042
  4. REMICADE [Suspect]
     Dosage: EVERY 4-5 WEEKS. BY AUG-2004 THE PATIENT HAD RECEIVED 18 INFUSIONS
     Route: 042
  5. REMICADE [Suspect]
     Route: 042
  6. REMICADE [Suspect]
     Indication: ANKYLOSING SPONDYLITIS
     Dosage: 2 300 MG INFUSIONS DURING MARCH 2003
     Route: 042
  7. ETANERCEPT [Suspect]
     Indication: ANKYLOSING SPONDYLITIS
     Route: 065
  8. METHOTREXATE [Concomitant]
     Route: 048

REACTIONS (5)
  - BLADDER DILATATION [None]
  - DYSURIA [None]
  - HYPERTONIC BLADDER [None]
  - IRIDOCYCLITIS [None]
  - RENAL IMPAIRMENT [None]
